FAERS Safety Report 20645308 (Version 1)
Quarter: 2022Q1

REPORT INFORMATION
  Report Type: Spontaneous
  Country: US (occurrence: None)
  Receive Date: 20220328
  Receipt Date: 20220328
  Transmission Date: 20220423
  Serious: Yes (Disabling)
  Sender: FDA-Public Use
  Company Number: None

PATIENT
  Age: 29 Year
  Sex: Male
  Weight: 82.8 kg

DRUGS (2)
  1. VYVANSE [Suspect]
     Active Substance: LISDEXAMFETAMINE DIMESYLATE
     Indication: Attention deficit hyperactivity disorder
     Dosage: FREQUENCY : DAILY;?
     Route: 048
  2. GUANFACINE [Suspect]
     Active Substance: GUANFACINE
     Dosage: FREQUENCY : DAILY;?
     Route: 048

REACTIONS (5)
  - Loss of therapeutic response [None]
  - Suspected counterfeit product [None]
  - Adulterated product [None]
  - Confusional state [None]
  - Cognitive disorder [None]

NARRATIVE: CASE EVENT DATE: 20211201
